FAERS Safety Report 5413445-8 (Version None)
Quarter: 2007Q3

REPORT INFORMATION
  Report Type: 
  Country: None (occurrence: None)
  Receive Date: 20070809
  Receipt Date: 20070809
  Transmission Date: 20080115
  Serious: Yes (Hospitalization, Other)
  Sender: FDA-Public Use
  Company Number: None

PATIENT
  Age: 49 Year
  Sex: Male
  Weight: 102.9665 kg

DRUGS (4)
  1. TRAZODONE UNKNOWN UNKNOWN [Suspect]
     Indication: INSOMNIA
     Dosage: 1/2 TABLET AT BEDTIME PO
     Route: 048
     Dates: start: 20070702, end: 20070729
  2. AVINZA [Concomitant]
  3. FENTORA [Concomitant]
  4. ZANAFLEX [Concomitant]

REACTIONS (30)
  - ABDOMINAL PAIN [None]
  - ABNORMAL BEHAVIOUR [None]
  - ABNORMAL DREAMS [None]
  - ANGER [None]
  - ANXIETY [None]
  - CONDITION AGGRAVATED [None]
  - CONFUSIONAL STATE [None]
  - CONSTIPATION [None]
  - CONVULSION [None]
  - CRYING [None]
  - DEHYDRATION [None]
  - DEPRESSION [None]
  - DIARRHOEA [None]
  - DISORIENTATION [None]
  - DRUG WITHDRAWAL SYNDROME [None]
  - DYSKINESIA [None]
  - FEAR [None]
  - FOOD POISONING [None]
  - FRUSTRATION [None]
  - HYPERHIDROSIS [None]
  - INSOMNIA [None]
  - IRRITABILITY [None]
  - MOOD ALTERED [None]
  - PARANOIA [None]
  - SCREAMING [None]
  - SMALL INTESTINAL OBSTRUCTION [None]
  - SPEECH DISORDER [None]
  - THINKING ABNORMAL [None]
  - TREMOR [None]
  - VOMITING [None]
